FAERS Safety Report 9282963 (Version 1)
Quarter: 2013Q2

REPORT INFORMATION
  Report Type: Spontaneous
  Country: US (occurrence: US)
  Receive Date: 20130510
  Receipt Date: 20130510
  Transmission Date: 20140414
  Serious: No
  Sender: FDA-Public Use
  Company Number: US-GLAXOSMITHKLINE-A0749245A

PATIENT
  Sex: Female

DRUGS (4)
  1. TYKERB [Suspect]
     Indication: BREAST CANCER
     Dosage: 1250MG PER DAY
     Route: 048
     Dates: end: 20080923
  2. XELODA [Suspect]
     Indication: BREAST CANCER METASTATIC
     Route: 048
     Dates: start: 2009, end: 2010
  3. HERCEPTIN [Concomitant]
  4. AVASTIN (BEVACIZUMAB) [Concomitant]

REACTIONS (9)
  - Fatigue [Recovering/Resolving]
  - Diarrhoea [Unknown]
  - Alopecia [Unknown]
  - Dyspepsia [Unknown]
  - Pruritus [Unknown]
  - Feeling abnormal [Unknown]
  - Rash [Unknown]
  - Dysgeusia [Unknown]
  - Decreased appetite [Unknown]
